FAERS Safety Report 4967474-9 (Version None)
Quarter: 2006Q2

REPORT INFORMATION
  Report Type: 
  Country: None (occurrence: None)
  Receive Date: 20060404
  Receipt Date: 20060323
  Transmission Date: 20061013
  Serious: Yes (Other)
  Sender: FDA-Public Use
  Company Number: HQWYE532327MAR06

PATIENT
  Sex: Male

DRUGS (1)
  1. EFFEXOR XR [Suspect]
     Indication: DEPRESSION
     Dosage: SEE IMAGE
     Route: 048

REACTIONS (18)
  - ANGER [None]
  - ASTHENIA [None]
  - BACK PAIN [None]
  - BONE PAIN [None]
  - DECREASED INTEREST [None]
  - DRUG ABUSER [None]
  - DRUG WITHDRAWAL SYNDROME [None]
  - ECONOMIC PROBLEM [None]
  - EYE PAIN [None]
  - FEELING ABNORMAL [None]
  - HYPOCHONDRIASIS [None]
  - IMPAIRED SELF-CARE [None]
  - MYALGIA [None]
  - PARAESTHESIA [None]
  - PARTNER STRESS [None]
  - SELF-MEDICATION [None]
  - SOMNOLENCE [None]
  - VERBAL ABUSE [None]
